FAERS Safety Report 9296940 (Version 4)
Quarter: 2014Q2

REPORT INFORMATION
  Report Type: Report from Study
  Country: CA (occurrence: CA)
  Receive Date: 20130518
  Receipt Date: 20140613
  Transmission Date: 20141212
  Serious: Yes (Other)
  Sender: FDA-Public Use
  Company Number: CA-ROCHE-1223580

PATIENT
  Sex: Male
  Weight: 88.5 kg

DRUGS (16)
  1. RITUXAN [Suspect]
     Indication: RHEUMATOID ARTHRITIS
     Route: 042
     Dates: start: 20120430
  2. PREDNISONE [Suspect]
     Indication: PRODUCT USED FOR UNKNOWN INDICATION
     Route: 065
  3. CELEBREX [Concomitant]
  4. CITALOPRAM [Concomitant]
  5. VITAMIN B12 [Concomitant]
  6. SYNTHROID [Concomitant]
  7. RAMIPRIL [Concomitant]
  8. ALFUZOSIN [Concomitant]
  9. ACETYLSALICYLIC ACID (ASA) [Concomitant]
  10. RISEDRONATE [Concomitant]
  11. ADVAIR [Concomitant]
  12. SPIRIVA [Concomitant]
  13. VENTOLIN [Concomitant]
  14. DIPHENHYDRAMINE HCL [Concomitant]
     Indication: PREMEDICATION
     Route: 048
     Dates: start: 20120430
  15. ACETAMINOPHEN [Concomitant]
     Indication: PREMEDICATION
     Route: 048
     Dates: start: 20120430
  16. METHYLPREDNISOLONE [Concomitant]
     Indication: PREMEDICATION
     Route: 042
     Dates: start: 20130430

REACTIONS (6)
  - Blindness transient [Unknown]
  - Arthralgia [Not Recovered/Not Resolved]
  - Therapeutic response decreased [Not Recovered/Not Resolved]
  - Bone disorder [Not Recovered/Not Resolved]
  - Joint stiffness [Not Recovered/Not Resolved]
  - Arthralgia [Not Recovered/Not Resolved]
